FAERS Safety Report 4269341-5 (Version None)
Quarter: 2004Q1

REPORT INFORMATION
  Report Type: 
  Country: None (occurrence: None)
  Receive Date: 20040112
  Receipt Date: 20040112
  Transmission Date: 20041129
  Serious: Yes (Hospitalization)
  Sender: FDA-Public Use
  Company Number: None

PATIENT
  Age: 55 Year

DRUGS (8)
  1. IBUPROFEN [Suspect]
     Indication: OSTEOARTHRITIS
     Dosage: OTC?
  2. TRAMADOL HCL [Suspect]
     Indication: OSTEOARTHRITIS
  3. HYDROCHLOROTHIAZIDE [Suspect]
  4. LABETALOL HCL [Concomitant]
  5. RABEPRAZOLE SODIUM [Concomitant]
  6. REGLAN [Concomitant]
  7. CLONIDINE [Concomitant]
  8. FELODIPINE [Concomitant]

REACTIONS (4)
  - GASTRITIS [None]
  - HYPOKALAEMIA [None]
  - NAUSEA [None]
  - VOMITING [None]
